FAERS Safety Report 22989742 (Version 3)
Quarter: 2023Q4

REPORT INFORMATION
  Report Type: Other
  Country: US (occurrence: US)
  Receive Date: 20230927
  Receipt Date: 20231103
  Transmission Date: 20240109
  Serious: Yes (Other)
  Sender: FDA-Public Use
  Company Number: US-INTERCEPT-PM2023001442

PATIENT
  Age: 41 Year
  Sex: Female
  Weight: 40 kg

DRUGS (20)
  1. OCALIVA [Suspect]
     Active Substance: OBETICHOLIC ACID
     Indication: Primary biliary cholangitis
     Dosage: 5 MILLIGRAM, QD
     Route: 048
     Dates: start: 20161122
  2. AZITHROMYCIN [Concomitant]
     Active Substance: AZITHROMYCIN
  3. BREO ELLIPTA [Concomitant]
     Active Substance: FLUTICASONE FUROATE\VILANTEROL TRIFENATATE
     Dosage: 1 PUFF, QD
     Route: 048
     Dates: start: 20220916
  4. CEFDINIR [Concomitant]
     Active Substance: CEFDINIR
  5. DOXYCYCLINE [Concomitant]
     Active Substance: DOXYCYCLINE
  6. FLUCONAZOLE [Concomitant]
     Active Substance: FLUCONAZOLE
     Dosage: UNK
     Dates: start: 20230725
  7. LEVOTHYROXINE [Concomitant]
     Active Substance: LEVOTHYROXINE
     Dosage: 25 MICROGRAM, QD
     Route: 048
     Dates: start: 20230712
  8. METHYLPREDNISOLONE [Concomitant]
     Active Substance: METHYLPREDNISOLONE
  9. MUPIROCIN [Concomitant]
     Active Substance: MUPIROCIN
     Dosage: 2% TOPICAL SMALL AMOUNT APPLY, TID
  10. OFLOXACIN [Concomitant]
     Active Substance: OFLOXACIN
  11. OMEPRAZOLE [Concomitant]
     Active Substance: OMEPRAZOLE
     Dosage: 20 MILLIGRAM, QD
     Route: 048
     Dates: start: 20230829
  12. PROLIA [Concomitant]
     Active Substance: DENOSUMAB
     Dosage: 1 ML EVERY 6 MONTHS
     Route: 058
     Dates: start: 20230130
  13. TERCONAZOLE [Concomitant]
     Active Substance: TERCONAZOLE
  14. TRAMADOL HCL [Concomitant]
     Active Substance: TRAMADOL HYDROCHLORIDE
  15. VITAMIN D3 [Concomitant]
     Active Substance: CHOLECALCIFEROL
  16. ALBUTEROL SULFATE [Concomitant]
     Active Substance: ALBUTEROL SULFATE
     Indication: Pain
     Dosage: 2 PUFFS, EVERY 4 TO 6 HOURS AS NEEDED
     Route: 048
     Dates: start: 20230724
  17. ALBUTEROL SULFATE [Concomitant]
     Active Substance: ALBUTEROL SULFATE
     Dosage: 2 PUFFS, EVERY 4 TO 6 HOURS AS NEEDED
     Route: 048
     Dates: start: 20230831
  18. POLYETHYLENE GLYCOL 3350 [Concomitant]
     Active Substance: POLYETHYLENE GLYCOL 3350
     Dosage: 17 GRAMS IN LIQUID EVERY DAY AS NEEDED
     Route: 048
     Dates: start: 20230823
  19. VALACYCLOVIR [Concomitant]
     Active Substance: VALACYCLOVIR HYDROCHLORIDE
     Dosage: 500 MILLIGRAM, QD
     Route: 048
     Dates: start: 20230621
  20. ALBUTEROL SULFATE [Concomitant]
     Active Substance: ALBUTEROL SULFATE
     Dosage: 1 VIAL VIA NEBULIZER EVERY 4 TO 6 HOURS AS NEEDED
     Dates: start: 20230802

REACTIONS (40)
  - Deafness [Not Recovered/Not Resolved]
  - Conductive deafness [Unknown]
  - Deafness neurosensory [Unknown]
  - Device related infection [Unknown]
  - Hypothyroidism [Unknown]
  - Type V hyperlipidaemia [Unknown]
  - Cerumen impaction [Unknown]
  - Eustachian tube dysfunction [Unknown]
  - Tympanic membrane perforation [Unknown]
  - Tympanosclerosis [Unknown]
  - Nasal disorder [Unknown]
  - Oesophageal motility disorder [Unknown]
  - Neck pain [Recovered/Resolved]
  - Back pain [Recovered/Resolved]
  - Osteoporosis [Unknown]
  - Malaise [Unknown]
  - Weight decreased [Recovered/Resolved]
  - Chest pain [Unknown]
  - Dysphagia [Unknown]
  - Dysuria [Unknown]
  - Nasal turbinate hypertrophy [Unknown]
  - Scleral discolouration [Not Recovered/Not Resolved]
  - Rhinitis allergic [Unknown]
  - Otitis externa [Unknown]
  - Otitis media acute [Unknown]
  - Upper respiratory tract infection [Unknown]
  - Bronchitis [Unknown]
  - Urinary tract infection [Unknown]
  - Ovarian cyst [Not Recovered/Not Resolved]
  - Vaginal lesion [Unknown]
  - Physical assault [Unknown]
  - Developmental delay [Unknown]
  - Sinus operation [Recovered/Resolved]
  - Oral surgery [Recovered/Resolved]
  - Liver function test increased [Recovered/Resolved]
  - Ocular icterus [Recovered/Resolved]
  - Abdominal pain [Recovered/Resolved]
  - Abdominal pain lower [Recovered/Resolved]
  - Constipation [Recovering/Resolving]
  - Arthralgia [Recovered/Resolved]

NARRATIVE: CASE EVENT DATE: 20180723
